FAERS Safety Report 12546263 (Version 1)
Quarter: 2016Q3

REPORT INFORMATION
  Report Type: Spontaneous
  Country: US (occurrence: US)
  Receive Date: 20160711
  Receipt Date: 20160711
  Transmission Date: 20161109
  Serious: No
  Sender: FDA-Public Use
  Company Number: US-PFIZER INC-2016300532

PATIENT
  Age: 72 Year
  Sex: Male

DRUGS (1)
  1. LOMOTIL [Suspect]
     Active Substance: ATROPINE SULFATE\DIPHENOXYLATE HYDROCHLORIDE
     Dosage: 0.025 MG ATROPINE SULFATE AND 2.5 MG DIPHENOXYLATE HCL, 1X/DAY
     Route: 048
     Dates: start: 20150723

REACTIONS (1)
  - Drug ineffective [Unknown]
